FAERS Safety Report 8070907-5 (Version None)
Quarter: 2011Q4

REPORT INFORMATION
  Report Type: 
  Country: None (occurrence: None)
  Receive Date: 20111221
  Receipt Date: 20110504
  Transmission Date: 20120403
  Serious: Yes (Hospitalization)
  Sender: FDA-Public Use
  Company Number: PHHY2010US70378

PATIENT
  Age: 76 Year
  Sex: Female
  Weight: 72.6 kg

DRUGS (13)
  1. EXJADE [Suspect]
     Indication: CHRONIC MYELOID LEUKAEMIA
     Dosage: 3 DF, ORAL
     Route: 048
     Dates: start: 20101004, end: 20101017
  2. PLAVIX [Concomitant]
  3. NORVASC [Concomitant]
  4. NEXIUM [Concomitant]
  5. POTASSIUM CHLORIDE [Concomitant]
  6. MULTI-VIT (VITAMINS NOS) [Concomitant]
  7. LISINOPRIL [Concomitant]
  8. PREDNISONE TAB [Concomitant]
  9. CORTICOSTEROIDS (NO INGREDIENTS/SUBSTANCES) [Concomitant]
  10. VITA-E (TOCOPHEROL) [Concomitant]
  11. SPIRONOLACTONE [Concomitant]
  12. AMBIEN [Concomitant]
  13. OYSTER SHELL CALCIUM WITH VITAMIN D (CALCIUM CARBONATE, VITAMIN D NOS [Concomitant]

REACTIONS (15)
  - CHILLS [None]
  - ARTHRALGIA [None]
  - BLOOD PRESSURE SYSTOLIC INCREASED [None]
  - RASH [None]
  - SKIN DISCOLOURATION [None]
  - SKIN ULCER [None]
  - HYPERSENSITIVITY [None]
  - SWELLING [None]
  - OEDEMA PERIPHERAL [None]
  - JOINT ADHESION [None]
  - MALAISE [None]
  - GASTROINTESTINAL SOUNDS ABNORMAL [None]
  - URTICARIA [None]
  - BLISTER [None]
  - ERYTHEMA [None]
